FAERS Safety Report 17169146 (Version 1)
Quarter: 2019Q4

REPORT INFORMATION
  Report Type: Report from Study
  Country: US (occurrence: US)
  Receive Date: 20191218
  Receipt Date: 20191218
  Transmission Date: 20200122
  Serious: Yes (Other)
  Sender: FDA-Public Use
  Company Number: US-ASTELLAS-2019US049905

PATIENT
  Age: 70 Year
  Sex: Female

DRUGS (1)
  1. MIRABEGRON [Suspect]
     Active Substance: MIRABEGRON
     Indication: PRODUCT USED FOR UNKNOWN INDICATION
     Dosage: UNK UNK, UNKNOWN FREQ.
     Route: 048

REACTIONS (5)
  - Product dose omission [Unknown]
  - Product availability issue [Unknown]
  - Disability [Unknown]
  - Diabetes mellitus [Unknown]
  - Expired product administered [Unknown]

NARRATIVE: CASE EVENT DATE: 20191211
